FAERS Safety Report 4691519-7 (Version None)
Quarter: 2005Q2

REPORT INFORMATION
  Report Type: 
  Country: None (occurrence: None)
  Receive Date: 20050608
  Receipt Date: 20040420
  Transmission Date: 20051028
  Serious: Yes (Other)
  Sender: FDA-Public Use
  Company Number: 365101

PATIENT
  Sex: Female

DRUGS (2)
  1. ACCUTANE [Suspect]
     Dosage: ORAL
     Route: 048
     Dates: start: 20040315
  2. LIPITOR [Concomitant]

REACTIONS (2)
  - BLOOD CHOLESTEROL INCREASED [None]
  - BLOOD TRIGLYCERIDES INCREASED [None]
